FAERS Safety Report 12715705 (Version 1)
Quarter: 2016Q3

REPORT INFORMATION
  Report Type: Spontaneous
  Country: US (occurrence: US)
  Receive Date: 20160906
  Receipt Date: 20160906
  Transmission Date: 20161109
  Serious: No
  Sender: FDA-Public Use
  Company Number: US-PFIZER INC-2016411807

PATIENT
  Age: 58 Year
  Sex: Female

DRUGS (9)
  1. FEMARA [Suspect]
     Active Substance: LETROZOLE
     Dosage: UNK
     Dates: end: 20120229
  2. AROMASIN [Suspect]
     Active Substance: EXEMESTANE
     Dosage: UNK
     Dates: start: 201311, end: 20140812
  3. XELODA [Suspect]
     Active Substance: CAPECITABINE
     Indication: NEUROPATHY PERIPHERAL
     Dosage: UNK
     Dates: start: 201007, end: 20110517
  4. ABRAXANE [Suspect]
     Active Substance: PACLITAXEL
     Dosage: UNK
     Dates: start: 20141203, end: 20150126
  5. FASLODEX [Suspect]
     Active Substance: FULVESTRANT
     Dosage: UNK
     Dates: start: 20120229, end: 20121003
  6. AFINITOR [Suspect]
     Active Substance: EVEROLIMUS
     Dosage: UNK
     Dates: start: 201311, end: 20140812
  7. NAVELBINE [Suspect]
     Active Substance: VINORELBINE TARTRATE
     Dosage: UNK, 3 TREATMENTS
     Dates: start: 201506, end: 20150828
  8. DOXIL [Suspect]
     Active Substance: DOXORUBICIN HYDROCHLORIDE
     Dosage: 4 CYCLES
     Dates: start: 20150312, end: 20150507
  9. GEMZAR [Suspect]
     Active Substance: GEMCITABINE HYDROCHLORIDE
     Dosage: UNK, 3 TREATMENTS
     Dates: start: 201506, end: 20150828

REACTIONS (2)
  - Neoplasm malignant [Unknown]
  - Disease progression [Unknown]
